FAERS Safety Report 4440535-9 (Version None)
Quarter: 2004Q3

REPORT INFORMATION
  Report Type: 
  Country: None (occurrence: None)
  Receive Date: 20040901
  Receipt Date: 20040901
  Transmission Date: 20050211
  Serious: Yes (Hospitalization)
  Sender: FDA-Public Use
  Company Number: None

PATIENT
  Sex: Female
  Weight: 63.5036 kg

DRUGS (2)
  1. SEPTRA [Suspect]
     Indication: OTITIS MEDIA
     Dosage: PO [PATIENT HAD 2 DOSES]
     Route: 048
  2. ARIMIDEX [Concomitant]

REACTIONS (4)
  - ABASIA [None]
  - DIZZINESS [None]
  - NAUSEA [None]
  - SYNCOPE [None]
